FAERS Safety Report 21368554 (Version 2)
Quarter: 2022Q3

REPORT INFORMATION
  Report Type: Report from Study
  Country: CN (occurrence: CN)
  Receive Date: 20220923
  Receipt Date: 20220923
  Transmission Date: 20221026
  Serious: Yes (Other)
  Sender: FDA-Public Use
  Company Number: CN-BRISTOL-MYERS SQUIBB COMPANY-2022-101256

PATIENT
  Age: 67 Year
  Sex: Male

DRUGS (2)
  1. OPDIVO [Suspect]
     Active Substance: NIVOLUMAB
     Indication: Non-small cell lung cancer
     Route: 041
     Dates: start: 20220610
  2. OPDIVO [Suspect]
     Active Substance: NIVOLUMAB
     Dosage: 1 EVERY 3 WEEKS
     Route: 041
     Dates: start: 20220919

REACTIONS (4)
  - Lithiasis [Unknown]
  - Asthenia [Unknown]
  - Decreased appetite [Unknown]
  - Off label use [Unknown]
